FAERS Safety Report 12987517 (Version 6)
Quarter: 2018Q1

REPORT INFORMATION
  Report Type: Spontaneous
  Country: US (occurrence: US)
  Receive Date: 20161130
  Receipt Date: 20180216
  Transmission Date: 20180508
  Serious: No
  Sender: FDA-Public Use
  Company Number: US-LUNDBECK-DKLU2022846

PATIENT
  Age: 78 Year
  Sex: Female
  Weight: 76 kg

DRUGS (6)
  1. NORTHERA [Suspect]
     Active Substance: DROXIDOPA
     Route: 065
  2. NORTHERA [Suspect]
     Active Substance: DROXIDOPA
     Dosage: NOT TITRATING
     Route: 065
     Dates: start: 20161207
  3. NORTHERA [Suspect]
     Active Substance: DROXIDOPA
     Route: 065
  4. NORTHERA [Suspect]
     Active Substance: DROXIDOPA
     Dosage: NOT TITRATING
     Route: 065
  5. NORTHERA [Suspect]
     Active Substance: DROXIDOPA
     Indication: PRODUCT USED FOR UNKNOWN INDICATION
     Dosage: SCHEDULE C AND TITRATING
     Route: 065
     Dates: start: 20161104, end: 20161107
  6. NORTHERA [Suspect]
     Active Substance: DROXIDOPA
     Dosage: NOT TITRATING
     Route: 065

REACTIONS (9)
  - Peripheral swelling [Recovering/Resolving]
  - Swelling face [Recovering/Resolving]
  - Blood pressure fluctuation [Unknown]
  - Rosacea [Unknown]
  - Urticaria [Recovered/Resolved]
  - Blood pressure decreased [Unknown]
  - Hypertension [Unknown]
  - Flushing [Unknown]
  - Drug administration error [Unknown]

NARRATIVE: CASE EVENT DATE: 201611
